FAERS Safety Report 5689707-6 (Version None)
Quarter: 2008Q1

REPORT INFORMATION
  Report Type: 
  Country: None (occurrence: None)
  Receive Date: 20080328
  Receipt Date: 20080318
  Transmission Date: 20080703
  Serious: Yes (Death, Hospitalization)
  Sender: FDA-Public Use
  Company Number: 2008US000425

PATIENT
  Age: 39 Year
  Sex: Female

DRUGS (1)
  1. PROGRAF [Suspect]
     Indication: RENAL TRANSPLANT
     Dosage: 2 MG, OTHER, ORAL
     Route: 048
     Dates: start: 20070601

REACTIONS (3)
  - ARTHRITIS BACTERIAL [None]
  - METABOLIC ACIDOSIS [None]
  - SEPSIS [None]
